FAERS Safety Report 7536553-4 (Version None)
Quarter: 2011Q2

REPORT INFORMATION
  Report Type: 
  Country: None (occurrence: None)
  Receive Date: 20110609
  Receipt Date: 20110525
  Transmission Date: 20111010
  Serious: Yes (Hospitalization, Other)
  Sender: FDA-Public Use
  Company Number: JP-UCBSA-006831

PATIENT
  Sex: Female

DRUGS (20)
  1. CERTOLIZUMAB PEGOL [Suspect]
     Route: 058
     Dates: start: 20110202, end: 20110301
  2. CELECOXIB [Concomitant]
     Dates: start: 20090417, end: 20100202
  3. TRIAZOLAM [Concomitant]
     Indication: INSOMNIA
     Dosage: 0.25 MG IN CASE OF INSOMNIA
  4. PIRMENOL HYDROCLORIDE [Concomitant]
  5. ALFACALCIDOL [Concomitant]
  6. KETOPROFEN [Concomitant]
     Dosage: ADEQUATE DOSE
     Dates: start: 20090529
  7. LOXOPROFEN SODIUM [Concomitant]
     Dates: start: 20100708
  8. PIRMENOL HYDROCHLORIDE [Concomitant]
  9. PREDNISOLONE [Concomitant]
  10. TIZANIDINE HYDROCHLORIDE [Concomitant]
  11. POLAPREZINC [Concomitant]
  12. DICLOFENAC SODIUM [Concomitant]
     Dates: start: 20090203
  13. CERTOLIZUMAB PEGOL [Suspect]
     Route: 058
  14. ALENDRONATE SODIUM [Concomitant]
  15. TIZANIDINE HYDROCHLORIDE [Concomitant]
  16. ELCATONIN [Concomitant]
     Dates: start: 20100202, end: 20100317
  17. PREDNISOLONE [Concomitant]
     Dates: start: 20090503
  18. POLAPREZINC [Concomitant]
  19. CERTOLIZUMAB PEGOL [Suspect]
     Indication: RHEUMATOID ARTHRITIS
     Route: 058
  20. CERTOLIZUMAB PEGOL [Suspect]
     Route: 058
     Dates: start: 20100202, end: 20110118

REACTIONS (2)
  - SPINAL COMPRESSION FRACTURE [None]
  - LYMPHOMA [None]
